FAERS Safety Report 17995437 (Version 1)
Quarter: 2020Q3

REPORT INFORMATION
  Report Type: Spontaneous
  Country: GB (occurrence: GB)
  Receive Date: 20200708
  Receipt Date: 20200708
  Transmission Date: 20201103
  Serious: Yes (Other)
  Sender: FDA-Public Use
  Company Number: GB-TEVA-2020-GB-1797491

PATIENT
  Age: 11 Year
  Sex: Female
  Weight: 36 kg

DRUGS (13)
  1. PREDNISOLONE. [Concomitant]
     Active Substance: PREDNISOLONE
     Dosage: 6 DAILY FOR 2 DAYS, 5 DAILY FOR 2 DAYS, 4 DAILY...
     Dates: start: 20200616
  2. EPIPEN [Concomitant]
     Active Substance: EPINEPHRINE
     Indication: ANAPHYLACTIC REACTION
     Dates: start: 20200317
  3. EPADERM [Concomitant]
     Active Substance: MINERAL OIL\PETROLATUM\WAX, EMULSIFYING
     Dosage: USE AS DIRECTED
     Dates: start: 20200611
  4. AMOXICILLIN. [Suspect]
     Active Substance: AMOXICILLIN
     Dosage: 30 ML
     Dates: start: 20200513, end: 20200518
  5. CLENIL MODULITE [Concomitant]
     Active Substance: BECLOMETHASONE DIPROPIONATE
     Dosage: 2 DOSAGE FORMS
     Route: 055
     Dates: start: 20200204, end: 20200403
  6. SOPROBEC [Concomitant]
     Dosage: 2 DOSAGE FORMS
     Route: 055
     Dates: start: 20200403
  7. MONTELUKAST [Concomitant]
     Active Substance: MONTELUKAST SODIUM
     Dosage: 1 DOSAGE FORMS DAILY; NIGHT
     Dates: start: 20200403
  8. HYDROCORTISONE. [Concomitant]
     Active Substance: HYDROCORTISONE
     Dosage: APPLY TO FACE AND NECK. 2 DOSAGE FORMS
     Dates: start: 20200608
  9. AMOXICILLIN. [Suspect]
     Active Substance: AMOXICILLIN
     Dosage: 250MG/5ML
     Dates: start: 20200616
  10. FLUCLOXACILLIN [Concomitant]
     Active Substance: FLUCLOXACILLIN
     Dosage: 4 DOSAGE FORMS
     Dates: start: 20200608, end: 20200615
  11. HYDROMOL EMOLLIENT [Concomitant]
     Dosage: USE IN THE BATH
     Dates: start: 20200204
  12. EMERADE [Concomitant]
     Active Substance: EPINEPHRINE BITARTRATE
     Indication: ANAPHYLACTIC REACTION
     Dates: start: 20200204, end: 20200519
  13. SALBUTAMOL [Concomitant]
     Active Substance: ALBUTEROL
     Dosage: 2 DOSAGE FORMS
     Route: 055
     Dates: start: 20200309

REACTIONS (1)
  - Rash pruritic [Recovering/Resolving]

NARRATIVE: CASE EVENT DATE: 20200616
